FAERS Safety Report 5368926-2 (Version None)
Quarter: 2007Q2

REPORT INFORMATION
  Report Type: 
  Country: None (occurrence: None)
  Receive Date: 20070625
  Receipt Date: 20070130
  Transmission Date: 20071010
  Serious: No
  Sender: FDA-Public Use
  Company Number: US-ASTRAZENECA-2006UW24823

PATIENT
  Age: 518 Month
  Sex: Female
  Weight: 103.9 kg

DRUGS (6)
  1. CRESTOR [Suspect]
     Indication: BLOOD CHOLESTEROL INCREASED
     Route: 048
     Dates: start: 20061001
  2. BYETTA [Concomitant]
  3. MULTI-VITAMIN [Concomitant]
  4. AVANDAMET [Concomitant]
     Dosage: 4/100 BID
  5. OMACOR [Concomitant]
  6. VITAMIN D [Concomitant]

REACTIONS (1)
  - ALOPECIA [None]
